FAERS Safety Report 9233679 (Version 1)
Quarter: 2013Q1

REPORT INFORMATION
  Report Type: Spontaneous
  Country: US (occurrence: None)
  Receive Date: 20121031
  Receipt Date: 20121031
  Transmission Date: 20140127
  Serious: No
  Sender: FDA-Public Use
  Company Number: PHEH2012US014865

PATIENT
  Age: 34 Year
  Sex: Female
  Weight: 61.2 kg

DRUGS (5)
  1. GILENYA (FTY)CAPSULE, 0.5 MG [Suspect]
     Route: 048
  2. INNAMON (CINNAMON VERUM) CAPSULE [Concomitant]
  3. ALEVE (NAPROXEN SODIUM) [Concomitant]
  4. VITAMIN B12 (CYANOCOBALMIN) [Concomitant]
  5. ORTHO TRI-CYCLEN (ETHINYLESTRADIOL, NORGESTIMATE) [Concomitant]

REACTIONS (2)
  - Blood pressure systolic decreased [None]
  - Dizziness [None]
